FAERS Safety Report 9765763 (Version 1)
Quarter: 2013Q4

REPORT INFORMATION
  Report Type: Spontaneous
  Country: US (occurrence: US)
  Receive Date: 20131217
  Receipt Date: 20131217
  Transmission Date: 20140711
  Serious: No
  Sender: FDA-Public Use
  Company Number: US-BIOGENIDEC-2013BI116985

PATIENT
  Age: 40 Year
  Sex: Female

DRUGS (1)
  1. TECFIDERA [Suspect]
     Indication: MULTIPLE SCLEROSIS
     Route: 048
     Dates: start: 201308

REACTIONS (5)
  - Fatigue [Not Recovered/Not Resolved]
  - Headache [Recovered/Resolved with Sequelae]
  - Constipation [Unknown]
  - Diarrhoea [Recovered/Resolved]
  - Flushing [Recovered/Resolved with Sequelae]
